FAERS Safety Report 5216830-2 (Version None)
Quarter: 2007Q1

REPORT INFORMATION
  Report Type: 
  Country: None (occurrence: None)
  Receive Date: 20070119
  Receipt Date: 20070108
  Transmission Date: 20070707
  Serious: Yes (Other)
  Sender: FDA-Public Use
  Company Number: 2006-03003

PATIENT
  Age: 62 Year
  Sex: Male
  Weight: 109 kg

DRUGS (3)
  1. VELCADE [Suspect]
     Indication: MULTIPLE MYELOMA
     Dosage: 1.0 MG/M2, INTRAVENOUS
     Route: 042
     Dates: start: 20061010
  2. REVLIMID [Suspect]
     Indication: MULTIPLE MYELOMA
     Dosage: 10.00 MG, ORAL
     Route: 048
     Dates: start: 20061010, end: 20061110
  3. DEXAMETHASONE [Suspect]
     Indication: MULTIPLE MYELOMA
     Dosage: 20.00 MG, ORAL
     Route: 048
     Dates: end: 20061110

REACTIONS (3)
  - ATRIAL FIBRILLATION [None]
  - ATRIAL FLUTTER [None]
  - HYPOTENSION [None]
